FAERS Safety Report 20367224 (Version 2)
Quarter: 2022Q1

REPORT INFORMATION
  Report Type: Spontaneous
  Country: US (occurrence: US)
  Receive Date: 20220123
  Receipt Date: 20220304
  Transmission Date: 20220423
  Serious: Yes (Life-Threatening, Hospitalization, Other)
  Sender: FDA-Public Use
  Company Number: US-MLMSERVICE-20220104-3299777-1

PATIENT
  Age: 36 Year
  Sex: Male

DRUGS (6)
  1. METFORMIN [Suspect]
     Active Substance: METFORMIN HYDROCHLORIDE
     Indication: Product used for unknown indication
     Dosage: UNK
     Route: 048
  2. TRAZODONE [Suspect]
     Active Substance: TRAZODONE HYDROCHLORIDE
     Indication: Product used for unknown indication
     Dosage: UNK
     Route: 065
  3. EPINEPHRINE [Suspect]
     Active Substance: EPINEPHRINE
     Indication: Distributive shock
     Dosage: UNK
     Route: 065
  4. NOREPINEPHRINE [Suspect]
     Active Substance: NOREPINEPHRINE
     Indication: Distributive shock
     Dosage: UNK
     Route: 065
  5. PHENYLEPHRINE [Suspect]
     Active Substance: PHENYLEPHRINE HYDROCHLORIDE
     Indication: Distributive shock
     Dosage: UNK
     Route: 065
  6. VASOPRESSIN [Suspect]
     Active Substance: VASOPRESSIN
     Indication: Distributive shock
     Dosage: UNK
     Route: 065

REACTIONS (10)
  - Distributive shock [Recovered/Resolved]
  - Hyperkalaemia [Recovered/Resolved]
  - Hypoglycaemia [Recovered/Resolved]
  - Lactic acidosis [Recovered/Resolved]
  - Toxicity to various agents [Recovered/Resolved]
  - Vasoplegia syndrome [Recovered/Resolved]
  - Intentional overdose [Recovered/Resolved]
  - Expired product administered [Recovered/Resolved]
  - Mental status changes [Recovered/Resolved]
  - Hypotension [Recovered/Resolved]
